APPROVED DRUG PRODUCT: VORICONAZOLE
Active Ingredient: VORICONAZOLE
Strength: 200MG/5ML
Dosage Form/Route: FOR SUSPENSION;ORAL
Application: A202361 | Product #001
Applicant: RISING PHARMA HOLDING INC
Approved: May 28, 2013 | RLD: No | RS: No | Type: DISCN